FAERS Safety Report 13496299 (Version 1)
Quarter: 2017Q2

REPORT INFORMATION
  Report Type: Spontaneous
  Country: AR (occurrence: AR)
  Receive Date: 20170428
  Receipt Date: 20170428
  Transmission Date: 20170830
  Serious: Yes (Other)
  Sender: FDA-Public Use
  Company Number: AR-PFIZER INC-2016584055

PATIENT
  Age: 79 Year
  Sex: Female

DRUGS (1)
  1. XELJANZ [Suspect]
     Active Substance: TOFACITINIB CITRATE
     Indication: RHEUMATOID ARTHRITIS
     Dosage: 5 MG, 2X/DAY
     Dates: start: 20151217

REACTIONS (8)
  - Accident [Not Recovered/Not Resolved]
  - Mycobacterial infection [Recovering/Resolving]
  - Synovial cyst [Not Recovered/Not Resolved]
  - Tuberculosis [Recovering/Resolving]
  - Hallucination [Recovering/Resolving]
  - Loss of consciousness [Recovering/Resolving]
  - Movement disorder [Recovering/Resolving]
  - Fracture [Recovering/Resolving]

NARRATIVE: CASE EVENT DATE: 201609
